FAERS Safety Report 9552441 (Version 1)
Quarter: 2013Q3

REPORT INFORMATION
  Report Type: Spontaneous
  Country: US (occurrence: US)
  Receive Date: 20130925
  Receipt Date: 20130925
  Transmission Date: 20140515
  Serious: No
  Sender: FDA-Public Use
  Company Number: US-PFIZER INC-2013272639

PATIENT
  Sex: Female

DRUGS (2)
  1. VERAPAMIL HCL [Suspect]
     Indication: CARDIOSPASM
     Dosage: UNK
  2. CARDIZEM [Suspect]
     Indication: CARDIOSPASM
     Dosage: UNK

REACTIONS (3)
  - Off label use [Unknown]
  - Swollen tongue [Unknown]
  - Lip swelling [Unknown]
